FAERS Safety Report 9159988 (Version 1)
Quarter: 2013Q1

REPORT INFORMATION
  Report Type: Spontaneous
  Country: US (occurrence: US)
  Receive Date: 20130313
  Receipt Date: 20130313
  Transmission Date: 20140127
  Serious: Yes (Other)
  Sender: FDA-Public Use
  Company Number: US-BAYER-2013-030842

PATIENT
  Age: 72 Year
  Sex: Male

DRUGS (1)
  1. MAGNEVIST [Suspect]
     Dosage: 15 ML, ONCE
     Dates: start: 20130228, end: 20130228

REACTIONS (4)
  - Loss of consciousness [Recovered/Resolved]
  - Convulsion [Recovered/Resolved]
  - Vomiting [Recovered/Resolved]
  - Urinary incontinence [Recovered/Resolved]
